FAERS Safety Report 19471896 (Version 2)
Quarter: 2021Q3

REPORT INFORMATION
  Report Type: Spontaneous
  Country: RO (occurrence: RO)
  Receive Date: 20210628
  Receipt Date: 20210706
  Transmission Date: 20211014
  Serious: Yes (Hospitalization, Other)
  Sender: FDA-Public Use
  Company Number: RO-ABBVIE-21K-135-3967070-00

PATIENT
  Age: 49 Year
  Sex: Male

DRUGS (4)
  1. MILURIT [Concomitant]
     Active Substance: ALLOPURINOL
     Indication: PRODUCT USED FOR UNKNOWN INDICATION
  2. RITUXIMAB. [Concomitant]
     Active Substance: RITUXIMAB
     Indication: CHRONIC LYMPHOCYTIC LEUKAEMIA STAGE 2
     Dates: start: 202008, end: 202011
  3. VENETOCLAX. [Suspect]
     Active Substance: VENETOCLAX
     Indication: CHRONIC LYMPHOCYTIC LEUKAEMIA STAGE 2
     Route: 048
  4. COVID?19 VACCINE [Concomitant]
     Indication: COVID-19 IMMUNISATION
     Route: 030
     Dates: start: 202105, end: 202105

REACTIONS (17)
  - Blood lactate dehydrogenase increased [Recovered/Resolved]
  - Tongue coated [Recovered/Resolved]
  - General physical health deterioration [Recovered/Resolved]
  - Chronic respiratory failure [Recovered/Resolved]
  - Asthenia [Recovered/Resolved]
  - Pallor [Recovered/Resolved]
  - Acute respiratory failure [Recovered/Resolved]
  - Pneumonia [Recovered/Resolved]
  - Pneumonia bacterial [Recovered/Resolved]
  - Transaminases increased [Recovered/Resolved]
  - Rales [Recovered/Resolved]
  - Dyspnoea exertional [Recovered/Resolved]
  - COVID-19 [Recovered/Resolved]
  - Hyperhidrosis [Recovered/Resolved]
  - Hepatitis [Recovered/Resolved]
  - Chronic obstructive pulmonary disease [Recovered/Resolved]
  - Arthritis [Recovered/Resolved]

NARRATIVE: CASE EVENT DATE: 20180318
